FAERS Safety Report 13965835 (Version 2)
Quarter: 2017Q3

REPORT INFORMATION
  Report Type: Spontaneous
  Country: US (occurrence: US)
  Receive Date: 20170913
  Receipt Date: 20170920
  Transmission Date: 20171128
  Serious: Yes (Other)
  Sender: FDA-Public Use
  Company Number: US-PFIZER INC-2017392647

PATIENT
  Age: 51 Year
  Sex: Male
  Weight: 61 kg

DRUGS (9)
  1. FUROSEMIDE. [Concomitant]
     Active Substance: FUROSEMIDE
     Indication: PREOPERATIVE CARE
     Dosage: UNK
  2. SIMVASTATIN. [Concomitant]
     Active Substance: SIMVASTATIN
     Indication: PREOPERATIVE CARE
     Dosage: UNK
  3. HYDRALAZINE [Concomitant]
     Active Substance: HYDRALAZINE HYDROCHLORIDE
     Indication: PREOPERATIVE CARE
     Dosage: UNK
  4. AMINOCAPROIC ACID. [Concomitant]
     Active Substance: AMINOCAPROIC ACID
     Dosage: 1 G, UNK (1 G/H)
     Route: 042
  5. LISINOPRIL. [Concomitant]
     Active Substance: LISINOPRIL
     Indication: PREOPERATIVE CARE
     Dosage: UNK
  6. WARFARIN [Concomitant]
     Active Substance: WARFARIN
     Indication: HEPARIN-INDUCED THROMBOCYTOPENIA
     Dosage: UNK
  7. BIVALIRUDIN. [Suspect]
     Active Substance: BIVALIRUDIN
     Indication: ANTICOAGULANT THERAPY
     Dosage: 2.5 MG/KG, UNK (2.5 MG/KG/H)
  8. CARVEDILOL. [Concomitant]
     Active Substance: CARVEDILOL
     Indication: PREOPERATIVE CARE
     Dosage: UNK
  9. AMINOCAPROIC ACID. [Concomitant]
     Active Substance: AMINOCAPROIC ACID
     Indication: PREOPERATIVE CARE
     Dosage: 10 G, UNK (OVER 5 MINUTES)
     Route: 042

REACTIONS (1)
  - Device related thrombosis [Recovered/Resolved]
